FAERS Safety Report 10962558 (Version 1)
Quarter: 2015Q1

REPORT INFORMATION
  Report Type: Spontaneous
  Country: NO (occurrence: NO)
  Receive Date: 20150327
  Receipt Date: 20150327
  Transmission Date: 20150721
  Serious: Yes (Life-Threatening)
  Sender: FDA-Public Use
  Company Number: NO-ASTRAZENECA-2015SE27312

PATIENT
  Age: 62 Year
  Sex: Male

DRUGS (1)
  1. FORXIGA [Suspect]
     Active Substance: DAPAGLIFLOZIN
     Indication: DIABETES MELLITUS
     Route: 048
     Dates: start: 201501, end: 201502

REACTIONS (3)
  - Haematocrit increased [Unknown]
  - Cerebral infarction [Recovered/Resolved with Sequelae]
  - Haemoglobin increased [Unknown]

NARRATIVE: CASE EVENT DATE: 20150223
